FAERS Safety Report 14364159 (Version 1)
Quarter: 2018Q1

REPORT INFORMATION
  Report Type: Spontaneous
  Country: GB (occurrence: GB)
  Receive Date: 20180108
  Receipt Date: 20180108
  Transmission Date: 20180509
  Serious: Yes (Other)
  Sender: FDA-Public Use
  Company Number: GB-PFIZER INC-2018004732

PATIENT
  Age: 51 Year
  Sex: Male

DRUGS (6)
  1. AMBISOME [Suspect]
     Active Substance: AMPHOTERICIN B
     Indication: GRAFT VERSUS HOST DISEASE IN LIVER
     Dosage: UNK
     Route: 065
  2. IBRUTINIB [Suspect]
     Active Substance: IBRUTINIB
     Indication: GRAFT VERSUS HOST DISEASE IN LIVER
     Dosage: 420 MG, 1X/DAY (420 MG, QD)
     Route: 065
  3. METHYLPREDNISOLONE. [Suspect]
     Active Substance: METHYLPREDNISOLONE
     Indication: GRAFT VERSUS HOST DISEASE IN LIVER
     Dosage: 1 MG/KG, 1X/DAY (1 MG/KG, QD)
     Route: 065
  4. CICLOSPORIN [Suspect]
     Active Substance: CYCLOSPORINE
     Indication: GRAFT VERSUS HOST DISEASE IN LIVER
     Dosage: 75 MG, 1X/DAY (75 MG, QD (50 MG MORNING AND 25 MG EVENING, QD))
     Route: 065
  5. RUXOLITINIB [Suspect]
     Active Substance: RUXOLITINIB
     Indication: GRAFT VERSUS HOST DISEASE IN LIVER
     Dosage: 10 MG, 2X/DAY
     Route: 065
     Dates: start: 20170811, end: 20171015
  6. MYCOPHENOLATE MOFETIL. [Suspect]
     Active Substance: MYCOPHENOLATE MOFETIL
     Indication: GRAFT VERSUS HOST DISEASE IN LIVER
     Dosage: 500 MG, 3X/DAY
     Route: 065

REACTIONS (2)
  - Acute kidney injury [Unknown]
  - Liver function test abnormal [Unknown]

NARRATIVE: CASE EVENT DATE: 20171211
